FAERS Safety Report 10188853 (Version 1)
Quarter: 2014Q2

REPORT INFORMATION
  Report Type: Spontaneous
  Country: US (occurrence: US)
  Receive Date: 20140522
  Receipt Date: 20140522
  Transmission Date: 20141212
  Serious: No
  Sender: FDA-Public Use
  Company Number: US-SA-2014SA027553

PATIENT
  Age: 56 Year
  Sex: Female

DRUGS (8)
  1. LANTUS [Suspect]
     Indication: TYPE 1 DIABETES MELLITUS
     Dosage: DOSE: 20-21 UNITS IN DEVIDED DOSES DOSE:7 UNIT(S)
     Route: 051
  2. HUMALOG [Concomitant]
  3. VITAMIN C [Concomitant]
     Dates: start: 201310
  4. CLOPIDOGREL [Concomitant]
     Indication: CARDIAC DISORDER
     Dates: start: 201006
  5. LISINOPRIL [Concomitant]
     Indication: CARDIAC DISORDER
     Dates: start: 201006
  6. ASPIRIN ^BAYER^ [Concomitant]
     Indication: CARDIAC DISORDER
     Dates: start: 201006
  7. ATENOLOL [Concomitant]
     Indication: CARDIAC DISORDER
     Dates: start: 201006
  8. VENLAFAXINE [Concomitant]
     Indication: STRESS
     Dates: start: 201402

REACTIONS (2)
  - Drug dose omission [Unknown]
  - Drug administration error [Unknown]
